FAERS Safety Report 10233729 (Version 2)
Quarter: 2014Q3

REPORT INFORMATION
  Report Type: Report from Study
  Country: US (occurrence: US)
  Receive Date: 20140612
  Receipt Date: 20140702
  Transmission Date: 20150326
  Serious: Yes (Death)
  Sender: FDA-Public Use
  Company Number: US-009507513-1406USA005588

PATIENT
  Age: 57 Year

DRUGS (1)
  1. DECADRON [Suspect]
     Active Substance: DEXAMETHASONE
     Indication: PLASMA CELL MYELOMA
     Dosage: 40 MG, EVERY TUESDAY. FORMULATION ORAL
     Route: 048
     Dates: start: 20110816, end: 20110831

REACTIONS (1)
  - Death [Fatal]

NARRATIVE: CASE EVENT DATE: 20110831
